FAERS Safety Report 9759725 (Version 2)
Quarter: 2014Q1

REPORT INFORMATION
  Report Type: Spontaneous
  Country: IT (occurrence: None)
  Receive Date: 20131212
  Receipt Date: 20140128
  Transmission Date: 20141002
  Serious: Yes (Hospitalization, Other)
  Sender: FDA-Public Use
  Company Number: 2013STPI000501

PATIENT
  Age: 19 Year
  Sex: Female

DRUGS (6)
  1. CARNITOR [Suspect]
     Indication: TYPE 1 DIABETES MELLITUS
     Route: 048
     Dates: start: 20131008
  2. NOVORAPID (INSULIN ASPART) [Suspect]
     Indication: TYPE 1 DIABETES MELLITUS
     Route: 058
  3. INSULATARD(INSULIN HUMAN INJECTION, ISOPHANE) [Suspect]
     Indication: TYPE 1 DIABETES MELLITUS
     Route: 058
  4. VALACICLOVIR (VALACICLOVIR HYDROCHLORIDE) [Concomitant]
  5. RIBOFLAVIN (RIBOFLAVIN TETRANICOTINATE) [Concomitant]
  6. LEVOTHYROXINE SODIUM (LEVOTHYROXINE SODIUM) [Concomitant]

REACTIONS (2)
  - Hypoglycaemia [None]
  - Drug interaction [None]
